FAERS Safety Report 6968637-3 (Version None)
Quarter: 2010Q3

REPORT INFORMATION
  Report Type: 
  Country: None (occurrence: None)
  Receive Date: 20100907
  Receipt Date: 20100831
  Transmission Date: 20110219
  Serious: Yes (Other)
  Sender: FDA-Public Use
  Company Number: NL-ABBOTT-07P-114-0428443-00

PATIENT
  Sex: Female
  Weight: 61 kg

DRUGS (8)
  1. HUMIRA [Suspect]
     Indication: RHEUMATOID ARTHRITIS
     Route: 058
     Dates: start: 20040727, end: 20061227
  2. FOSAVANCE [Concomitant]
     Indication: OSTEOPOROSIS
     Dates: start: 20000111
  3. MTX [Concomitant]
     Indication: RHEUMATOID ARTHRITIS
     Dates: start: 19960820
  4. FOLIUM ACID [Concomitant]
     Indication: RHEUMATOID ARTHRITIS
     Dates: start: 20041109
  5. FORMOTEROL FUMARATE [Concomitant]
     Indication: CHRONIC OBSTRUCTIVE PULMONARY DISEASE
     Dates: start: 20040617
  6. VENTOLIN [Concomitant]
     Indication: CHRONIC OBSTRUCTIVE PULMONARY DISEASE
     Dates: start: 20021107
  7. SPIRIVA [Concomitant]
     Indication: CHRONIC OBSTRUCTIVE PULMONARY DISEASE
     Dates: start: 20021107
  8. COMMERCIAL HUMIRA [Concomitant]
     Indication: RHEUMATOID ARTHRITIS
     Route: 058
     Dates: start: 20040204

REACTIONS (1)
  - LEUKOCYTOCLASTIC VASCULITIS [None]
